FAERS Safety Report 16460316 (Version 1)
Quarter: 2019Q2

REPORT INFORMATION
  Report Type: Report from Study
  Country: US (occurrence: BW)
  Receive Date: 20190620
  Receipt Date: 20190620
  Transmission Date: 20190711
  Serious: Yes (Congenital Anomaly, Other)
  Sender: FDA-Public Use
  Company Number: US-MYLANLABS-2019M1057689

PATIENT

DRUGS (1)
  1. DOLUTEGRAVIR [Suspect]
     Active Substance: DOLUTEGRAVIR
     Indication: HIV INFECTION
     Route: 064

REACTIONS (3)
  - Cerebral ventricle dilatation [Unknown]
  - Foetal exposure during pregnancy [Recovered/Resolved]
  - Lissencephaly [Unknown]
